FAERS Safety Report 11372018 (Version 3)
Quarter: 2017Q4

REPORT INFORMATION
  Report Type: Report from Study
  Country: US (occurrence: US)
  Receive Date: 20150812
  Receipt Date: 20171208
  Transmission Date: 20180320
  Serious: Yes (Death, Other)
  Sender: FDA-Public Use
  Company Number: US-ACTELION-A-NJ2015-122047

PATIENT
  Age: 69 Year
  Sex: Female
  Weight: 65.76 kg

DRUGS (19)
  1. OPSUMIT [Suspect]
     Active Substance: MACITENTAN
     Indication: PORTOPULMONARY HYPERTENSION
     Dosage: 10 MG, QD
     Route: 048
     Dates: start: 20150729, end: 20171027
  2. URSACOL [Concomitant]
     Active Substance: URSODIOL
     Dosage: 250 MG, BID
  3. DEXILANT [Concomitant]
     Active Substance: DEXLANSOPRAZOLE
     Dosage: 60 MG, QD
  4. ZINC. [Concomitant]
     Active Substance: ZINC
     Dosage: UNK, QD
  5. LASIX [Concomitant]
     Active Substance: FUROSEMIDE
  6. ROPINIROLE. [Concomitant]
     Active Substance: ROPINIROLE
     Dosage: UNK, TID
  7. ALDACTONE [Concomitant]
     Active Substance: SPIRONOLACTONE
     Dosage: 100 MG, QD
  8. VITAMIN A [Concomitant]
     Active Substance: VITAMIN A
     Dosage: UNK, QD
  9. MAGNESIUM [Concomitant]
     Active Substance: MAGNESIUM
     Dosage: 250 MG, QD
  10. LACTULOSE. [Concomitant]
     Active Substance: LACTULOSE
     Dosage: 1 TBSP, QD
  11. RIFAXIMIN. [Concomitant]
     Active Substance: RIFAXIMIN
     Dosage: 500 MG, BID
  12. LASIX [Concomitant]
     Active Substance: FUROSEMIDE
     Dosage: 20 MG, QD
  13. VITAMIN D3 [Concomitant]
     Active Substance: CHOLECALCIFEROL
     Dosage: UNK, QD
  14. SENNA [Concomitant]
     Active Substance: SENNA LEAF\SENNOSIDES\SENNOSIDES A AND B
     Dosage: UNK, BID
  15. MILK THISTLE [Concomitant]
     Active Substance: DIETARY SUPPLEMENT\HERBALS\MILK THISTLE
     Dosage: 175 MG, QD
  16. COREG [Concomitant]
     Active Substance: CARVEDILOL
     Dosage: 3.13 MG, BID
  17. LEVOTHYROXINE. [Concomitant]
     Active Substance: LEVOTHYROXINE
     Dosage: 137 MG, QD
  18. EQUATE STOOL SOFTENER [Concomitant]
     Active Substance: CASANTHRANOL\DOCUSATE SODIUM
     Dosage: UNK, BID
  19. MVI [Concomitant]
     Active Substance: VITAMINS
     Dosage: UNK, QD

REACTIONS (14)
  - Weight increased [Unknown]
  - Syncope [Unknown]
  - Hepatic cirrhosis [Fatal]
  - Pleural effusion [Unknown]
  - Dyspnoea [Unknown]
  - Fluid retention [Unknown]
  - Disease progression [Unknown]
  - Aspiration pleural cavity [Unknown]
  - Gallbladder obstruction [Unknown]
  - Dizziness [Unknown]
  - Fall [Unknown]
  - Blood pressure measurement [Unknown]
  - Oxygen saturation decreased [Unknown]
  - Pericardial effusion [Unknown]

NARRATIVE: CASE EVENT DATE: 201611
